FAERS Safety Report 25904364 (Version 1)
Quarter: 2025Q4

REPORT INFORMATION
  Report Type: Spontaneous
  Country: EU (occurrence: EU)
  Receive Date: 20251010
  Receipt Date: 20251010
  Transmission Date: 20260119
  Serious: Yes (Other)
  Sender: ROCHE
  Company Number: EU-ROCHE-10000405129

PATIENT
  Age: 56 Year
  Sex: Male

DRUGS (13)
  1. RITUXIMAB [Suspect]
     Active Substance: RITUXIMAB
     Indication: Primary effusion lymphoma
     Route: 065
  2. RITUXIMAB [Suspect]
     Active Substance: RITUXIMAB
     Indication: Kaposi sarcoma inflammatory cytokine syndrome
  3. RITUXIMAB [Suspect]
     Active Substance: RITUXIMAB
     Indication: Viraemia
  4. CYCLOPHOSPHAMIDE [Suspect]
     Active Substance: CYCLOPHOSPHAMIDE
     Indication: Primary effusion lymphoma
     Route: 065
  5. CYCLOPHOSPHAMIDE [Suspect]
     Active Substance: CYCLOPHOSPHAMIDE
     Indication: Kaposi sarcoma inflammatory cytokine syndrome
  6. DOXORUBICIN [Suspect]
     Active Substance: DOXORUBICIN
     Indication: Primary effusion lymphoma
     Route: 065
  7. DOXORUBICIN [Suspect]
     Active Substance: DOXORUBICIN
     Indication: Kaposi sarcoma inflammatory cytokine syndrome
  8. VINCRISTINE [Suspect]
     Active Substance: VINCRISTINE
     Indication: Primary effusion lymphoma
     Route: 065
  9. VINCRISTINE [Suspect]
     Active Substance: VINCRISTINE
     Indication: Kaposi sarcoma inflammatory cytokine syndrome
  10. PREDNISONE [Suspect]
     Active Substance: PREDNISONE
     Indication: Primary effusion lymphoma
     Route: 065
  11. PREDNISONE [Suspect]
     Active Substance: PREDNISONE
     Indication: Kaposi sarcoma inflammatory cytokine syndrome
  12. EVEROLIMUS [Suspect]
     Active Substance: EVEROLIMUS
     Indication: Prophylaxis against transplant rejection
     Route: 065
  13. TACROLIMUS [Suspect]
     Active Substance: TACROLIMUS
     Indication: Prophylaxis against transplant rejection
     Route: 065

REACTIONS (5)
  - Febrile neutropenia [Unknown]
  - Neurotoxicity [Unknown]
  - Cytomegalovirus infection reactivation [Recovered/Resolved]
  - Drug-induced liver injury [Unknown]
  - Nodular regenerative hyperplasia [Unknown]
